FAERS Safety Report 7275287-0 (Version None)
Quarter: 2011Q1

REPORT INFORMATION
  Report Type: 
  Country: None (occurrence: None)
  Receive Date: 20110204
  Receipt Date: 20110126
  Transmission Date: 20110831
  Serious: Yes (Life-Threatening, Hospitalization)
  Sender: FDA-Public Use
  Company Number: GB-ROCHE-755960

PATIENT
  Age: 21 Year
  Sex: Female
  Weight: 60 kg

DRUGS (3)
  1. DEPO-PROVERA [Concomitant]
     Indication: CONTRACEPTION
     Route: 030
     Dates: start: 20101101
  2. TAMIFLU [Suspect]
     Indication: INFLUENZA
     Route: 065
  3. WARFARIN SODIUM [Concomitant]
     Indication: CARDIAC DISORDER
     Route: 048

REACTIONS (3)
  - ANAEMIA [None]
  - VAGINAL HAEMORRHAGE [None]
  - INTERNATIONAL NORMALISED RATIO INCREASED [None]
